FAERS Safety Report 5683054-4 (Version None)
Quarter: 2008Q1

REPORT INFORMATION
  Report Type: 
  Country: None (occurrence: None)
  Receive Date: 20080327
  Receipt Date: 20080321
  Transmission Date: 20080703
  Serious: Yes (Other)
  Sender: FDA-Public Use
  Company Number: PHBS2007JP16006

PATIENT
  Age: 63 Year
  Sex: Male
  Weight: 71 kg

DRUGS (10)
  1. ZOMETA [Suspect]
     Indication: MULTIPLE MYELOMA
     Dosage: 4 MG, UNK
     Route: 042
     Dates: start: 20060825, end: 20070710
  2. MELPHALAN [Concomitant]
  3. DIOVAN [Concomitant]
     Indication: HYPERTENSION
     Dosage: 80 MG, UNK
     Route: 048
     Dates: start: 20070209
  4. DEPAS [Concomitant]
     Dosage: 1 MG, UNK
     Route: 048
     Dates: start: 20070105
  5. MUCOSOLVAN [Concomitant]
     Dosage: 45 MG, UNK
     Route: 048
     Dates: start: 20060124
  6. WARFARIN SODIUM [Concomitant]
     Route: 048
     Dates: start: 20070518
  7. FAMOTIDINE [Concomitant]
     Dosage: 40 MG, UNK
     Route: 048
     Dates: start: 20050218
  8. UNSPECIFIED DRUG [Concomitant]
     Dosage: 100 MG, UNK
     Route: 048
     Dates: start: 20061222
  9. ALKERAN [Concomitant]
     Dosage: 10 MG, UNK
     Route: 048
     Dates: start: 20070627
  10. PREDONINE [Concomitant]
     Route: 048
     Dates: start: 20070627

REACTIONS (6)
  - BONE DENSITY DECREASED [None]
  - BONE DISORDER [None]
  - DENTAL TREATMENT [None]
  - DISEASE PROGRESSION [None]
  - GINGIVAL DISORDER [None]
  - OSTEONECROSIS [None]
